FAERS Safety Report 4345202-8 (Version None)
Quarter: 2004Q2

REPORT INFORMATION
  Report Type: 
  Country: None (occurrence: None)
  Receive Date: 20040420
  Receipt Date: 20040413
  Transmission Date: 20050107
  Serious: Yes (Hospitalization)
  Sender: FDA-Public Use
  Company Number: 2004GB00450

PATIENT
  Age: 20 Year
  Sex: Male
  Weight: 65 kg

DRUGS (7)
  1. DIPRIVAN [Suspect]
     Indication: GENERAL ANAESTHESIA
     Dosage: MG IV
     Route: 042
     Dates: start: 20040206
  2. MULTIPLE HEPATOTOXIC DRUGS [Suspect]
  3. ACYCLOVIR [Concomitant]
  4. FLUCONAZOLE [Concomitant]
  5. PENICILLIN [Concomitant]
  6. ENALAPRIL MALEATE [Concomitant]
  7. BISOPROLOL [Concomitant]

REACTIONS (1)
  - HEPATIC ENZYME INCREASED [None]
